FAERS Safety Report 9862699 (Version 1)
Quarter: 2014Q1

REPORT INFORMATION
  Report Type: Spontaneous
  Country: US (occurrence: US)
  Receive Date: 20140203
  Receipt Date: 20140203
  Transmission Date: 20141002
  Serious: Yes (Death)
  Sender: FDA-Public Use
  Company Number: CHPA2014US001693

PATIENT
  Age: 86 Year
  Sex: Female

DRUGS (7)
  1. ACETAMINOPHEN (PARACETAMOL) [Suspect]
     Route: 065
  2. QUETIAPINE [Suspect]
     Route: 065
  3. BUPROPION [Suspect]
     Route: 065
  4. TOPIRAMATE [Suspect]
     Route: 065
  5. DORZOLAMIDE HYDROCHLORIDE W/TIMOLOL MALEATE [Suspect]
     Route: 065
  6. SIMVASTATIN [Suspect]
     Route: 065
  7. AMLODIPINE [Suspect]
     Route: 065

REACTIONS (1)
  - Death [Fatal]
